FAERS Safety Report 7229612-7 (Version None)
Quarter: 2011Q1

REPORT INFORMATION
  Report Type: 
  Country: None (occurrence: None)
  Receive Date: 20110117
  Receipt Date: 20110114
  Transmission Date: 20110831
  Serious: No
  Sender: FDA-Public Use
  Company Number: US-JNJFOC-20110103275

PATIENT
  Sex: Female
  Weight: 79.38 kg

DRUGS (29)
  1. HYDROCHLOROTHIAZIDE [Concomitant]
     Indication: HYPERTENSION
     Route: 048
  2. OXYCODONE [Concomitant]
     Indication: BREAKTHROUGH PAIN
     Route: 048
  3. NEURONTIN [Concomitant]
     Indication: MIGRAINE
     Route: 048
  4. NEURONTIN [Concomitant]
     Indication: CONVULSION
     Route: 048
  5. SEROQUEL [Concomitant]
     Indication: HALLUCINATION
     Route: 048
  6. NAPROXEN [Concomitant]
     Indication: HEADACHE
     Route: 048
  7. HYDROMORPHONE [Concomitant]
     Indication: MIGRAINE
     Route: 030
  8. KLONOPIN [Concomitant]
     Indication: PANIC ATTACK
     Route: 048
  9. VERAPAMIL [Concomitant]
     Indication: HYPERTENSION
     Route: 048
  10. NAPROXEN [Concomitant]
     Indication: INFLAMMATION
     Route: 048
  11. PATANOL [Concomitant]
     Indication: EYE ALLERGY
     Route: 031
  12. ZOFRAN [Concomitant]
     Indication: NAUSEA
     Route: 060
  13. AMBIEN [Concomitant]
     Indication: SLEEP DISORDER THERAPY
     Route: 048
  14. SEROQUEL [Concomitant]
     Indication: SLEEP DISORDER THERAPY
     Route: 048
  15. LITHIUM CARBONATE [Concomitant]
     Indication: BIPOLAR DISORDER
     Route: 048
  16. DEPAKOTE [Concomitant]
     Indication: CONVULSION
     Route: 048
  17. SYNTHROID [Concomitant]
     Indication: THYROID DISORDER
     Route: 048
  18. CLONIDINE [Concomitant]
     Indication: HYPERTENSION
     Route: 062
  19. CLARITIN [Concomitant]
     Indication: MULTIPLE ALLERGIES
     Route: 048
  20. DURAGESIC-50 [Suspect]
     Indication: BACK PAIN
     Dosage: 75 UG/HR + 75 UG/HR PATCH
     Route: 062
  21. VALIUM [Concomitant]
     Indication: ANXIETY
     Route: 048
  22. DEPAKOTE [Concomitant]
     Indication: BIPOLAR DISORDER
     Route: 048
  23. PREMPRO [Concomitant]
     Route: 048
  24. PHENERGAN [Concomitant]
     Indication: VOMITING
     Route: 030
  25. LEXAPRO [Concomitant]
     Indication: DEPRESSION
     Route: 048
  26. KLONOPIN [Concomitant]
     Indication: ANXIETY
     Route: 048
  27. VALIUM [Concomitant]
     Indication: HEADACHE
     Route: 048
  28. FLONASE [Concomitant]
     Indication: MULTIPLE ALLERGIES
     Route: 045
  29. POTASSIUM [Concomitant]
     Indication: MEDICAL DIET
     Route: 048

REACTIONS (9)
  - FEELING ABNORMAL [None]
  - INAPPROPRIATE SCHEDULE OF DRUG ADMINISTRATION [None]
  - SNEEZING [None]
  - AGITATION [None]
  - PAIN [None]
  - PRODUCT QUALITY ISSUE [None]
  - COUGH [None]
  - PRODUCT ADHESION ISSUE [None]
  - WITHDRAWAL SYNDROME [None]
